FAERS Safety Report 16254448 (Version 1)
Quarter: 2019Q2

REPORT INFORMATION
  Report Type: Spontaneous
  Country: US (occurrence: US)
  Receive Date: 20190430
  Receipt Date: 20190430
  Transmission Date: 20190711
  Serious: Yes (Other)
  Sender: FDA-Public Use
  Company Number: US-COLGATE PALMOLIVE COMPANY-20190401173

PATIENT
  Sex: Female

DRUGS (1)
  1. GEL-KAM MINT [Suspect]
     Active Substance: STANNOUS FLUORIDE
     Indication: ORAL PAIN
     Dosage: UNKNOWN DOSE
     Route: 048

REACTIONS (4)
  - Hyperaesthesia teeth [Recovering/Resolving]
  - Dysphagia [Recovering/Resolving]
  - Weight decreased [Recovering/Resolving]
  - Condition aggravated [Recovering/Resolving]
